FAERS Safety Report 23114350 (Version 1)
Quarter: 2023Q4

REPORT INFORMATION
  Report Type: Spontaneous
  Country: ES (occurrence: ES)
  Receive Date: 20231027
  Receipt Date: 20231027
  Transmission Date: 20240110
  Serious: Yes (Life-Threatening, Hospitalization, Other)
  Sender: FDA-Public Use
  Company Number: ES-MLMSERVICE-2023101245811831

PATIENT
  Age: 67 Year
  Sex: Female

DRUGS (3)
  1. CISPLATIN [Suspect]
     Active Substance: CISPLATIN
     Indication: Metastases to lymph nodes
     Dosage: 4 CYCLICAL
  2. LEVOTHYROXINE [Concomitant]
     Active Substance: LEVOTHYROXINE
     Indication: Primary hypothyroidism
  3. CISPLATIN [Suspect]
     Active Substance: CISPLATIN
     Indication: Cervix carcinoma stage III
     Dosage: 4 CYCLICAL

REACTIONS (5)
  - Pancytopenia [Recovering/Resolving]
  - Septic shock [Recovering/Resolving]
  - Cerebral artery thrombosis [Recovering/Resolving]
  - Ischaemic stroke [Recovering/Resolving]
  - Aspiration [Recovering/Resolving]
